FAERS Safety Report 8922920 (Version 1)
Quarter: 2012Q4

REPORT INFORMATION
  Report Type: 
  Country: US (occurrence: US)
  Receive Date: 20121123
  Receipt Date: 20121123
  Transmission Date: 20130627
  Serious: No
  Sender: FDA-Public Use
  Company Number: US-009507513-1211USA008845

PATIENT
  Age: 63 Year
  Sex: Male
  Weight: 65.76 kg

DRUGS (7)
  1. PEGINTRON [Suspect]
     Dosage: 120 microgram per 0.5 ml weekly, redipen
     Route: 058
  2. VICTRELIS [Suspect]
     Dosage: 200 mg
  3. RIBAVIRIN [Suspect]
     Dosage: 200 mg
  4. LISINOPRIL [Concomitant]
     Dosage: 10 mg
  5. OMEPRAZOLE [Concomitant]
     Dosage: 10 mg
  6. METOPROLOL [Concomitant]
     Dosage: 100 mg ER
  7. WARFARIN [Concomitant]
     Dosage: 10 mg

REACTIONS (4)
  - Asthenia [Unknown]
  - Dyspnoea [Unknown]
  - Rash [Unknown]
  - Dysgeusia [Unknown]
